FAERS Safety Report 5803002-3 (Version None)
Quarter: 2008Q3

REPORT INFORMATION
  Report Type: 
  Country: None (occurrence: None)
  Receive Date: 20080708
  Receipt Date: 20080627
  Transmission Date: 20090109
  Serious: Yes (Other)
  Sender: FDA-Public Use
  Company Number: ES-ROCHE-537392

PATIENT
  Age: 70 Year
  Sex: Female

DRUGS (4)
  1. XELODA [Suspect]
     Dosage: FORM: FILM COATED TABLETS
     Route: 048
     Dates: start: 20060102, end: 20060306
  2. XELODA [Suspect]
     Route: 048
     Dates: start: 20060306, end: 20060327
  3. XELODA [Suspect]
     Route: 048
  4. OXALIPLATINE [Concomitant]
     Route: 042
     Dates: start: 20060102, end: 20060102

REACTIONS (1)
  - ERYTHRODERMIC PSORIASIS [None]
